FAERS Safety Report 8873025 (Version 1)
Quarter: 2012Q4

REPORT INFORMATION
  Report Type: 
  Country: IT (occurrence: IT)
  Receive Date: 20121029
  Receipt Date: 20121029
  Transmission Date: 20130627
  Serious: Yes (Other)
  Sender: FDA-Public Use
  Company Number: IT-ABBOTT-12P-083-1000801-00

PATIENT
  Age: 18 Year
  Sex: Female

DRUGS (1)
  1. LEVOTHYROXINE [Suspect]
     Indication: HYPOTHYROIDISM

REACTIONS (2)
  - Papillary thyroid cancer [Recovered/Resolved]
  - Treatment noncompliance [Unknown]
